FAERS Safety Report 6316280-1 (Version None)
Quarter: 2009Q3

REPORT INFORMATION
  Report Type: 
  Country: None (occurrence: None)
  Receive Date: 20090820
  Receipt Date: 20090814
  Transmission Date: 20100115
  Serious: No
  Sender: FDA-Public Use
  Company Number: US-JNJFOC-20090805562

PATIENT
  Weight: 49.44 kg

DRUGS (7)
  1. DURAGESIC-100 [Suspect]
     Route: 062
  2. DURAGESIC-100 [Suspect]
     Indication: SCIATICA
     Route: 062
  3. NORCO [Concomitant]
     Indication: PAIN
     Dosage: 10/325 MG AS NEEDED
     Route: 048
  4. SOMA [Concomitant]
     Indication: PAIN
     Route: 048
  5. AMBIEN [Concomitant]
     Indication: SLEEP DISORDER
     Route: 048
  6. TYLENOL NO 4 [Concomitant]
     Indication: BREAKTHROUGH PAIN
     Dosage: 300MG /60 MG
     Route: 048
  7. MARIJUANA [Concomitant]
     Route: 065

REACTIONS (3)
  - DRUG ADMINISTERED AT INAPPROPRIATE SITE [None]
  - DRUG INEFFECTIVE [None]
  - WRONG TECHNIQUE IN DRUG USAGE PROCESS [None]
